FAERS Safety Report 20050226 (Version 1)
Quarter: 2021Q4

REPORT INFORMATION
  Report Type: Spontaneous
  Country: US (occurrence: US)
  Receive Date: 20211109
  Receipt Date: 20211109
  Transmission Date: 20220303
  Serious: No
  Sender: FDA-Public Use
  Company Number: US-PFIZER INC-202101237040

PATIENT
  Age: 7 Year
  Sex: Male

DRUGS (2)
  1. XYNTHA [Suspect]
     Active Substance: ANTIHEMOPHILIC FACTOR, HUMAN RECOMBINANT RESIDUES 743-1636 DELETED
     Indication: Haemarthrosis
     Dosage: 500 IU, (TAKE 1 VIAL (500 UNITS))
  2. XYNTHA [Suspect]
     Active Substance: ANTIHEMOPHILIC FACTOR, HUMAN RECOMBINANT RESIDUES 743-1636 DELETED
     Indication: Blood disorder
     Dosage: 1000 IU, (TAKE 2 VIALS (500 UNITS X2))

REACTIONS (3)
  - Off label use [Unknown]
  - Product prescribing issue [Unknown]
  - Joint injury [Unknown]
